FAERS Safety Report 8809945 (Version 1)
Quarter: 2012Q4

REPORT INFORMATION
  Report Type: 
  Country: FR (occurrence: FR)
  Receive Date: 20120926
  Receipt Date: 20120926
  Transmission Date: 20130627
  Serious: Yes (Other)
  Sender: FDA-Public Use
  Company Number: FR-UCBSA-067193

PATIENT
  Age: 0 Year
  Sex: Female

DRUGS (1)
  1. KEPPRA [Suspect]
     Dosage: DAILY DOSE: 2 G
     Route: 064
     Dates: end: 20110928

REACTIONS (3)
  - Low birth weight baby [Unknown]
  - Growth retardation [Not Recovered/Not Resolved]
  - Foetal exposure during pregnancy [Recovered/Resolved]
